FAERS Safety Report 8320575-X (Version None)
Quarter: 2012Q2

REPORT INFORMATION
  Report Type: 
  Country: None (occurrence: None)
  Receive Date: 20120430
  Receipt Date: 20120425
  Transmission Date: 20120825
  Serious: Yes (Death)
  Sender: FDA-Public Use
  Company Number: CN-PFIZER INC-2012102786

PATIENT
  Age: 45 Year
  Sex: Male

DRUGS (2)
  1. SUTENT [Suspect]
     Indication: RENAL CELL CARCINOMA
     Dosage: 50 MG, 1X/DAY
  2. SUTENT [Suspect]
     Dosage: 37.5 MG, 1X/DAY

REACTIONS (3)
  - APHAGIA [None]
  - MULTI-ORGAN FAILURE [None]
  - GASTROINTESTINAL DISORDER [None]
